FAERS Safety Report 10249528 (Version 8)
Quarter: 2014Q4

REPORT INFORMATION
  Report Type: Spontaneous
  Country: US (occurrence: US)
  Receive Date: 20140620
  Receipt Date: 20141201
  Transmission Date: 20150528
  Serious: Yes (Other)
  Sender: FDA-Public Use
  Company Number: US-PFIZER INC-2014170057

PATIENT
  Age: 66 Year
  Sex: Male

DRUGS (20)
  1. SUTENT [Suspect]
     Active Substance: SUNITINIB MALATE
     Dosage: 37.5 MG, DAILY
     Route: 048
     Dates: end: 20140825
  2. METOPROLOL [Concomitant]
     Active Substance: METOPROLOL
     Dosage: 25 MG, 1X/DAY
     Route: 048
     Dates: start: 2002
  3. ATORVASTATIN CALCIUM. [Concomitant]
     Active Substance: ATORVASTATIN CALCIUM
     Dosage: 40 MG, DAILY
     Route: 048
     Dates: start: 2002
  4. COENZYME Q10 [Concomitant]
     Active Substance: UBIDECARENONE
     Dosage: 10 MG, DAILY
     Route: 048
  5. MAGINEX [Concomitant]
     Dosage: 61 MG, DAILY [(615) TABLETS ENTERIC COATED]
     Route: 048
  6. PLAVIX [Concomitant]
     Active Substance: CLOPIDOGREL BISULFATE
     Dosage: UNK
  7. ANDROGEL [Concomitant]
     Active Substance: TESTOSTERONE
     Dosage: 1.62%, UNK
     Dates: start: 2009
  8. LEVOTHYROXINE SODIUM. [Concomitant]
     Active Substance: LEVOTHYROXINE SODIUM
     Dosage: 175 UG, DAILY
     Route: 048
     Dates: start: 1998
  9. SYNTHROID [Concomitant]
     Active Substance: LEVOTHYROXINE SODIUM
     Dosage: UNK
  10. IMODIUM [Concomitant]
     Active Substance: LOPERAMIDE HYDROCHLORIDE
     Dosage: UNK
  11. NIACIN ER [Concomitant]
     Active Substance: NIACIN
     Dosage: 500 MG, DAILY (SUSTAINED RELEASE 24HR)
     Route: 048
  12. SUTENT [Suspect]
     Active Substance: SUNITINIB MALATE
     Indication: PANCREATIC NEUROENDOCRINE TUMOUR METASTATIC
     Dosage: 37.5 MG, DAILY
     Route: 048
     Dates: start: 20140131
  13. METHYLPREDNISOLONE. [Concomitant]
     Active Substance: METHYLPREDNISOLONE
     Dosage: 32 MG, UNK (1 TABLET/24HRS PRIOR TO SCAN AND 1 TABLET/2HRS PRIOR TO SCAN)
     Route: 048
  14. LOMOTIL [Concomitant]
     Active Substance: ATROPINE SULFATE\DIPHENOXYLATE HYDROCHLORIDE
     Dosage: 1 DF, 4X/DAY (2.5-0.25 MG 1 PO QID PRN)
     Route: 048
  15. SUTENT [Suspect]
     Active Substance: SUNITINIB MALATE
     Dosage: 37.5 MG, DAILY
     Route: 048
     Dates: end: 201405
  16. LOSARTAN [Concomitant]
     Active Substance: LOSARTAN
     Dosage: 50 MG, 2X/DAY
     Route: 048
     Dates: start: 2002
  17. ANDROGEL [Concomitant]
     Active Substance: TESTOSTERONE
     Dosage: 1.25 G (1%), 2 PUMP PRESS
     Route: 061
  18. CURCUMEN [Concomitant]
     Dosage: 500 MG, 3X/DAY
     Route: 048
  19. CLOPIDOGREL BISULFATE. [Concomitant]
     Active Substance: CLOPIDOGREL BISULFATE
     Dosage: 0.5 UNK, 2X/DAY (75 MG TABLET, TAKE 0.5)
     Route: 048
     Dates: start: 2002
  20. VITAMIN D [Concomitant]
     Active Substance: CHOLECALCIFEROL
     Dosage: 2 DF, DAILY 5000 UNIT TABLETS
     Route: 048

REACTIONS (10)
  - Flushing [Recovered/Resolved]
  - Hair colour changes [Recovered/Resolved]
  - Proctalgia [Recovered/Resolved]
  - Dyspepsia [Recovered/Resolved]
  - Pancreatic neuroendocrine tumour metastatic [Unknown]
  - Diarrhoea [Recovered/Resolved]
  - Dysgeusia [Recovered/Resolved]
  - Eyelash discolouration [Recovered/Resolved]
  - Anal injury [Recovered/Resolved]
  - Disease progression [Unknown]

NARRATIVE: CASE EVENT DATE: 2014
